FAERS Safety Report 18626854 (Version 1)
Quarter: 2020Q4

REPORT INFORMATION
  Report Type: Spontaneous
  Country: US (occurrence: US)
  Receive Date: 20201217
  Receipt Date: 20201217
  Transmission Date: 20210114
  Serious: Yes (Life-Threatening, Hospitalization, Other)
  Sender: FDA-Public Use
  Company Number: US-HIKMA PHARMACEUTICALS USA INC.-US-H14001-20-52827

PATIENT
  Age: 77 Year
  Sex: Male

DRUGS (8)
  1. METRONIDAZOL [Concomitant]
     Active Substance: METRONIDAZOLE
     Indication: PRODUCT USED FOR UNKNOWN INDICATION
     Route: 065
  2. DOXORUBICIN [Suspect]
     Active Substance: DOXORUBICIN
     Indication: HEPATOCELLULAR CARCINOMA
     Dosage: 3 WEEKS LATER FOR A SECOND TACE TREATMENT (CONSISTING OF A 2:1 MIXTURE CONTAINING 20ML ETHIODIZED OI
     Route: 065
  3. MITOMYCIN C [Suspect]
     Active Substance: MITOMYCIN
     Indication: HEPATOCELLULAR CARCINOMA
     Dosage: FIRST TACE SESSION (CONSISTING OF A 2:1 MIXTURE CONTAINING 20ML ETHIODIZED OIL AND 10ML AQUEOUS CHEM
     Route: 065
  4. DOXORUBICIN [Suspect]
     Active Substance: DOXORUBICIN
     Dosage: FIRST TACE SESSION (CONSISTING OF A 2:1 MIXTURE CONTAINING 20ML ETHIODIZED OIL AND 10ML AQUEOUS CHEM
     Route: 065
  5. CEFAZOLIN [Concomitant]
     Active Substance: CEFAZOLIN
     Indication: PRODUCT USED FOR UNKNOWN INDICATION
     Route: 065
  6. DEXAMETHASONE, ONDANSETRON [Concomitant]
     Indication: PRODUCT USED FOR UNKNOWN INDICATION
     Dosage: UNKNOWN
     Route: 065
  7. MITOMYCIN C [Suspect]
     Active Substance: MITOMYCIN
     Dosage: 3 WEEKS LATER FOR A SECOND TACE TREATMENT (CONSISTING OF A 2:1 MIXTURE CONTAINING 20ML ETHIODIZED OI
     Route: 065
  8. DIPHENHYDRAMINE. [Concomitant]
     Active Substance: DIPHENHYDRAMINE
     Indication: PRODUCT USED FOR UNKNOWN INDICATION
     Route: 065

REACTIONS (5)
  - Tachypnoea [Recovered/Resolved]
  - Hypoxia [Recovered/Resolved]
  - Chills [Recovered/Resolved]
  - Hypertension [Recovered/Resolved]
  - Hypersensitivity [Recovered/Resolved]
